FAERS Safety Report 7463068-4 (Version None)
Quarter: 2011Q2

REPORT INFORMATION
  Report Type: 
  Country: None (occurrence: None)
  Receive Date: 20110506
  Receipt Date: 20110405
  Transmission Date: 20111010
  Serious: Yes (Hospitalization)
  Sender: FDA-Public Use
  Company Number: US-BAYER-200923334NA

PATIENT
  Age: 27 Year
  Sex: Female
  Weight: 74 kg

DRUGS (10)
  1. DIPROSPAN [Concomitant]
     Route: 065
  2. DIPROSPAN [Concomitant]
     Route: 065
  3. CELEXA [Concomitant]
     Dosage: 20 MG (DAILY DOSE), QD, UNKNOWN
     Route: 065
     Dates: start: 20100213
  4. SCOPOLAMINE [Concomitant]
     Route: 061
  5. VERSAL [Concomitant]
  6. NUBAIN [Concomitant]
     Route: 042
     Dates: start: 20090216
  7. DEMEROL [Concomitant]
     Indication: CHILLS
     Route: 042
     Dates: start: 20100216, end: 20100216
  8. MIRENA [Suspect]
     Indication: PRODUCT USED FOR UNKNOWN INDICATION
     Dosage: FREQUENCY
     Route: 015
     Dates: start: 20090216, end: 20090216
  9. ADIPEX [Concomitant]
     Dosage: BID
     Route: 065
     Dates: start: 20100213
  10. FENTANYL [Concomitant]
     Indication: PAIN
     Dosage: EVERY 10 MIN
     Route: 042
     Dates: start: 20100216

REACTIONS (4)
  - DEVICE BREAKAGE [None]
  - EMOTIONAL DISTRESS [None]
  - POST PROCEDURAL HAEMORRHAGE [None]
  - INJURY [None]
